FAERS Safety Report 8603480-0 (Version None)
Quarter: 2012Q3

REPORT INFORMATION
  Report Type: 
  Country: None (occurrence: None)
  Receive Date: 20120817
  Receipt Date: 20120806
  Transmission Date: 20120928
  Serious: Yes (Other)
  Sender: FDA-Public Use
  Company Number: CHPA2012US017812

PATIENT
  Age: 70 Year
  Sex: Female

DRUGS (1)
  1. EXCEDRIN EXTRA STRENGTH CAPLETS [Suspect]
     Indication: NASOPHARYNGITIS
     Dosage: 2 DF, BID PRN
     Route: 048
     Dates: start: 20080101, end: 20120101

REACTIONS (4)
  - ENERGY INCREASED [None]
  - BLOOD CHOLESTEROL INCREASED [None]
  - OFF LABEL USE [None]
  - THERAPEUTIC RESPONSE UNEXPECTED [None]
